FAERS Safety Report 13206541 (Version 1)
Quarter: 2017Q1

REPORT INFORMATION
  Report Type: Spontaneous
  Country: US (occurrence: US)
  Receive Date: 20170209
  Receipt Date: 20170209
  Transmission Date: 20170428
  Serious: No
  Sender: FDA-Public Use
  Company Number: US-SA-2016SA212453

PATIENT
  Age: 73 Year
  Sex: Male

DRUGS (5)
  1. LOVAZA [Concomitant]
     Active Substance: OMEGA-3-ACID ETHYL ESTERS
  2. PRALUENT [Suspect]
     Active Substance: ALIROCUMAB
     Indication: BLOOD CHOLESTEROL
     Route: 065
  3. ALIROCUMAB PREFILLED PEN [Concomitant]
     Active Substance: ALIROCUMAB
  4. NEXIUM [Concomitant]
     Active Substance: ESOMEPRAZOLE MAGNESIUM
  5. ZETIA [Concomitant]
     Active Substance: EZETIMIBE

REACTIONS (2)
  - Laceration [Unknown]
  - Bleeding time prolonged [Not Recovered/Not Resolved]

NARRATIVE: CASE EVENT DATE: 2016
